FAERS Safety Report 8476776-3 (Version None)
Quarter: 2012Q2

REPORT INFORMATION
  Report Type: 
  Country: None (occurrence: None)
  Receive Date: 20120628
  Receipt Date: 20120622
  Transmission Date: 20120825
  Serious: Yes (Hospitalization)
  Sender: FDA-Public Use
  Company Number: US-MERCK-1203USA00787

PATIENT
  Age: 63 Year
  Sex: Female

DRUGS (3)
  1. HORMONES (UNSPECIFIED) [Concomitant]
     Route: 065
     Dates: start: 20000101, end: 20100101
  2. SYNTHROID [Concomitant]
     Indication: HYPOTHYROIDISM
     Route: 048
     Dates: start: 20000101
  3. FOSAMAX [Suspect]
     Indication: OSTEOPENIA
     Route: 048
     Dates: start: 20010720, end: 20081101

REACTIONS (4)
  - DIZZINESS [None]
  - DEVICE FAILURE [None]
  - FEMUR FRACTURE [None]
  - PAIN IN EXTREMITY [None]
